FAERS Safety Report 12525224 (Version 1)
Quarter: 2020Q3

REPORT INFORMATION
  Report Type: Report from Study
  Country: ES (occurrence: ES)
  Receive Date: 20160704
  Receipt Date: 20160704
  Transmission Date: 20201105
  Serious: Yes (Hospitalization)
  Sender: FDA-Public Use
  Company Number: ES-JNJFOC-20160424220

PATIENT
  Age: 75 Year
  Sex: Male
  Weight: 60 kg

DRUGS (16)
  1. BLINDED; IBRUTINI [Suspect]
     Active Substance: IBRUTINIB
     Indication: PANCREATIC CARCINOMA METASTATIC
     Dates: start: 20160601, end: 20160613
  2. BLINDED; IBRUTINI [Suspect]
     Active Substance: IBRUTINIB
     Indication: PANCREATIC CARCINOMA METASTATIC
     Dates: start: 20160407, end: 20160417
  3. PLACEBO [Suspect]
     Active Substance: UNSPECIFIED INGREDIENT
     Indication: PANCREATIC CARCINOMA METASTATIC
     Dates: start: 20160601, end: 20160613
  4. PLACEBO [Suspect]
     Active Substance: UNSPECIFIED INGREDIENT
     Indication: PANCREATIC CARCINOMA METASTATIC
     Dates: start: 20160407, end: 20160417
  5. GEMCITABINE. [Suspect]
     Active Substance: GEMCITABINE
     Indication: PANCREATIC CARCINOMA METASTATIC
     Dosage: 600 MG/M2, DAYS 1, 8, 15
     Route: 042
     Dates: start: 20160623
  6. NAB?PACLITAXEL [Suspect]
     Active Substance: PACLITAXEL
     Indication: PANCREATIC CARCINOMA METASTATIC
     Dosage: 125 MG/M2, DAYS 1, 8, 15
     Route: 042
     Dates: start: 20160407, end: 20160417
  7. PLACEBO [Suspect]
     Active Substance: UNSPECIFIED INGREDIENT
     Indication: PANCREATIC CARCINOMA METASTATIC
     Dates: start: 20160623
  8. GEMCITABINE. [Suspect]
     Active Substance: GEMCITABINE
     Indication: PANCREATIC CARCINOMA METASTATIC
     Dosage: 800 MG/M2, DAYS 1, 8, 15
     Route: 042
     Dates: start: 20160511, end: 20160613
  9. BLINDED; IBRUTINI [Suspect]
     Active Substance: IBRUTINIB
     Indication: PANCREATIC CARCINOMA METASTATIC
     Dates: start: 20160511, end: 20160519
  10. PLACEBO [Suspect]
     Active Substance: UNSPECIFIED INGREDIENT
     Indication: PANCREATIC CARCINOMA METASTATIC
     Dates: start: 20160511, end: 20160519
  11. NAB?PACLITAXEL [Suspect]
     Active Substance: PACLITAXEL
     Indication: PANCREATIC CARCINOMA METASTATIC
     Dosage: 100 MG/M2, DAYS 1, 8, 15
     Route: 042
     Dates: start: 20160601, end: 20160613
  12. BLINDED; IBRUTINI [Suspect]
     Active Substance: IBRUTINIB
     Indication: PANCREATIC CARCINOMA METASTATIC
     Dates: start: 20160623
  13. GEMCITABINE. [Suspect]
     Active Substance: GEMCITABINE
     Indication: PANCREATIC CARCINOMA METASTATIC
     Dosage: 800 MG/M2, DAYS 1, 8, 15
     Route: 042
     Dates: start: 20160601, end: 20160613
  14. GEMCITABINE. [Suspect]
     Active Substance: GEMCITABINE
     Indication: PANCREATIC CARCINOMA METASTATIC
     Dosage: 1000 MG/M2, DAYS 1, 8, 15
     Route: 042
     Dates: start: 20160407, end: 20160417
  15. NAB?PACLITAXEL [Suspect]
     Active Substance: PACLITAXEL
     Indication: PANCREATIC CARCINOMA METASTATIC
     Dosage: 75 MG/M2, DAYS 1, 8, 15
     Route: 042
     Dates: start: 20160623
  16. NAB?PACLITAXEL [Suspect]
     Active Substance: PACLITAXEL
     Indication: PANCREATIC CARCINOMA METASTATIC
     Dosage: 100 MG/M2, DAYS 1, 8, 15
     Route: 042
     Dates: start: 20160511, end: 20160519

REACTIONS (7)
  - Pyrexia [Recovered/Resolved]
  - Platelet count decreased [Recovered/Resolved]
  - Neutropenia [Not Recovered/Not Resolved]
  - Platelet count decreased [Recovered/Resolved]
  - Gastrointestinal haemorrhage [Recovered/Resolved]
  - Anaemia [Recovered/Resolved]
  - Gastrointestinal haemorrhage [Recovered/Resolved]

NARRATIVE: CASE EVENT DATE: 20160417
